FAERS Safety Report 20059020 (Version 1)
Quarter: 2021Q4

REPORT INFORMATION
  Report Type: Spontaneous
  Country: CA (occurrence: CA)
  Receive Date: 20211111
  Receipt Date: 20211111
  Transmission Date: 20220303
  Serious: Yes (Other)
  Sender: FDA-Public Use
  Company Number: CA-PFIZER INC-202101483073

PATIENT
  Age: 63 Year
  Sex: Female

DRUGS (5)
  1. XELJANZ [Suspect]
     Active Substance: TOFACITINIB CITRATE
     Indication: Rheumatoid arthritis
     Dosage: 5 MG, 2X/DAY
     Route: 048
  2. CALCIUM [Concomitant]
     Active Substance: CALCIUM
     Dosage: 1 DF, DOSAGE NOT AVAILABLE
     Route: 048
  3. HYDROXYCHLOROQUINE SULFATE [Concomitant]
     Active Substance: HYDROXYCHLOROQUINE SULFATE
     Dosage: 200 MG, 2X/DAY
     Route: 065
     Dates: start: 202012
  4. METHOTREXATE [Concomitant]
     Active Substance: METHOTREXATE
     Dosage: 20 MG
     Dates: start: 202012
  5. MORPHINE [Concomitant]
     Active Substance: MORPHINE
     Dosage: 1 DF, DOSAGE NOT AVAILABLE
     Route: 065

REACTIONS (2)
  - Osteoarthritis [Not Recovered/Not Resolved]
  - Therapeutic product effect incomplete [Unknown]

NARRATIVE: CASE EVENT DATE: 20211018
